FAERS Safety Report 14937654 (Version 6)
Quarter: 2019Q2

REPORT INFORMATION
  Report Type: Report from Study
  Country: US (occurrence: US)
  Receive Date: 20180525
  Receipt Date: 20190607
  Transmission Date: 20190711
  Serious: Yes (Hospitalization, Other)
  Sender: FDA-Public Use
  Company Number: PHHY2018US002320

PATIENT
  Age: 54 Year
  Sex: Female

DRUGS (1)
  1. KYMRIAH [Suspect]
     Active Substance: TISAGENLECLEUCEL
     Indication: DIFFUSE LARGE B-CELL LYMPHOMA
     Dosage: 1 DF, ONCE/SINGLE
     Route: 042
     Dates: start: 20160915

REACTIONS (7)
  - Fatigue [Unknown]
  - Cytokine release syndrome [Recovered/Resolved]
  - Neuropathy peripheral [Unknown]
  - B-cell aplasia [Unknown]
  - Cytokine release syndrome [Not Recovered/Not Resolved]
  - Decreased appetite [Unknown]
  - Hypothyroidism [Unknown]

NARRATIVE: CASE EVENT DATE: 20160915
